FAERS Safety Report 25981625 (Version 1)
Quarter: 2025Q4

REPORT INFORMATION
  Report Type: Spontaneous
  Country: EU (occurrence: EU)
  Receive Date: 20251031
  Receipt Date: 20251031
  Transmission Date: 20260117
  Serious: Yes (Hospitalization)
  Sender: MERCK SHARP & DOHME LLC
  Company Number: None

PATIENT
  Age: 46 Year
  Sex: Male

DRUGS (4)
  1. KEYTRUDA [Suspect]
     Active Substance: PEMBROLIZUMAB
     Indication: Adenocarcinoma gastric stage IV
     Dosage: 2MG/KG EVERY 21 DAYS, HAS RECEIVED 2 CYCLES
     Route: 042
     Dates: start: 20250702, end: 20250723
  2. FLUOROURACIL SODIUM [Suspect]
     Active Substance: FLUOROURACIL SODIUM
     Indication: Adenocarcinoma gastric stage IV
     Dosage: TIME INTERVAL: CYCLICAL: 400MG/M2, HAS RECEIVED 3 CYCLES
     Route: 042
     Dates: start: 20250618, end: 20250723
  3. OXALIPLATIN [Suspect]
     Active Substance: OXALIPLATIN
     Indication: Adenocarcinoma gastric stage IV
     Dosage: TIME INTERVAL: CYCLICAL: 85MG/M2, HAS RECEIVED 3 CYCLES
     Route: 042
     Dates: start: 20250618, end: 20250723
  4. CALCIUM FOLINATE (1587CO) [Concomitant]
     Indication: Adenocarcinoma gastric stage IV
     Dosage: 400MG/M2
     Route: 042
     Dates: start: 20250618

REACTIONS (3)
  - Immune-mediated nephritis [Recovering/Resolving]
  - Acute kidney injury [Recovering/Resolving]
  - Immune-mediated dermatitis [Recovered/Resolved]

NARRATIVE: CASE EVENT DATE: 20250806
